FAERS Safety Report 16559747 (Version 1)
Quarter: 2019Q3

REPORT INFORMATION
  Report Type: Spontaneous
  Country: US (occurrence: US)
  Receive Date: 20190710
  Receipt Date: 20190710
  Transmission Date: 20191004
  Serious: Yes (Disabling)
  Sender: FDA-Public Use
  Company Number: None

PATIENT
  Age: 77 Year
  Sex: Male
  Weight: 99.45 kg

DRUGS (17)
  1. CIPROFLOXACIN. [Suspect]
     Active Substance: CIPROFLOXACIN
     Indication: BRONCHIECTASIS
     Dates: start: 20150131, end: 20190410
  2. CIPROFLOXACIN. [Suspect]
     Active Substance: CIPROFLOXACIN
     Indication: PSEUDOMONAS INFECTION
     Dates: start: 20150131, end: 20190410
  3. SMARTVEST [Concomitant]
  4. ATORVASTATIN [Concomitant]
     Active Substance: ATORVASTATIN
  5. METOPROLOL TARTRATE. [Concomitant]
     Active Substance: METOPROLOL TARTRATE
  6. MULTI VITAMIN [Concomitant]
     Active Substance: VITAMINS
  7. CULTURELLE [Concomitant]
     Active Substance: LACTOBACILLUS RHAMNOSUS
  8. VALSARTAN. [Concomitant]
     Active Substance: VALSARTAN
  9. VITAMIN D3 [Concomitant]
     Active Substance: CHOLECALCIFEROL
  10. LEVOFLOXACIN. [Suspect]
     Active Substance: LEVOFLOXACIN
  11. RABEPRAZOLE SOD [Concomitant]
     Active Substance: RABEPRAZOLE SODIUM
  12. CIPROFLOXACIN. [Suspect]
     Active Substance: CIPROFLOXACIN
     Indication: SINUSITIS
     Dates: start: 20150131, end: 20190410
  13. ASPIRIN. [Concomitant]
     Active Substance: ASPIRIN
  14. COQ10 [Concomitant]
     Active Substance: UBIDECARENONE
  15. CIPROFLOXACIN. [Suspect]
     Active Substance: CIPROFLOXACIN
     Indication: PNEUMONIA
     Dates: start: 20150131, end: 20190410
  16. QNASL [Concomitant]
     Active Substance: BECLOMETHASONE DIPROPIONATE
  17. MUCINEX [Concomitant]
     Active Substance: GUAIFENESIN

REACTIONS (12)
  - Pseudomonas infection [None]
  - Insomnia [None]
  - Fatigue [None]
  - Joint swelling [None]
  - Tendon pain [None]
  - Pain in extremity [None]
  - Peripheral swelling [None]
  - Pneumonia [None]
  - Disability [None]
  - Gait disturbance [None]
  - Arthralgia [None]
  - Loss of personal independence in daily activities [None]

NARRATIVE: CASE EVENT DATE: 20190320
